FAERS Safety Report 19741116 (Version 1)
Quarter: 2021Q3

REPORT INFORMATION
  Report Type: Spontaneous
  Country: MX (occurrence: MX)
  Receive Date: 20210825
  Receipt Date: 20210825
  Transmission Date: 20211014
  Serious: Yes (Other)
  Sender: FDA-Public Use
  Company Number: MX-GRANULES-MX-2021GRALIT00461

PATIENT
  Age: 56 Year
  Sex: Male

DRUGS (1)
  1. GABAPENTIN. [Suspect]
     Active Substance: GABAPENTIN
     Indication: SPINAL DISORDER
     Route: 065

REACTIONS (2)
  - Product use in unapproved indication [Unknown]
  - Liver injury [Recovered/Resolved]
